FAERS Safety Report 7113342-6 (Version None)
Quarter: 2010Q4

REPORT INFORMATION
  Report Type: 
  Country: None (occurrence: None)
  Receive Date: 20101119
  Receipt Date: 20101108
  Transmission Date: 20110411
  Serious: Yes (Hospitalization)
  Sender: FDA-Public Use
  Company Number: US-ASTRAZENECA-2010SE53210

PATIENT
  Age: 74 Year
  Sex: Female
  Weight: 53 kg

DRUGS (5)
  1. METOPROLOL SUCCINATE [Suspect]
     Indication: HYPERTENSION
     Route: 048
  2. EXEMESTANE [Suspect]
     Indication: BREAST CANCER FEMALE
     Route: 048
     Dates: start: 20030103
  3. DELIX [Suspect]
     Indication: HYPERTENSION
     Route: 048
  4. TETRAZEPAM [Concomitant]
     Indication: ERYTHROLEUKAEMIA
     Route: 048
  5. IMBUN [Concomitant]
     Indication: ERYTHROLEUKAEMIA
     Route: 048

REACTIONS (1)
  - HYPERTENSIVE CRISIS [None]
